FAERS Safety Report 16909654 (Version 6)
Quarter: 2019Q4

REPORT INFORMATION
  Report Type: Report from Study
  Country: CO (occurrence: CO)
  Receive Date: 20191011
  Receipt Date: 20191231
  Transmission Date: 20200122
  Serious: Yes (Hospitalization)
  Sender: FDA-Public Use
  Company Number: CO-ROCHE-2428283

PATIENT
  Age: 26 Year
  Sex: Female
  Weight: 53.8 kg

DRUGS (14)
  1. DIPYRONE [Concomitant]
     Active Substance: DIPYRONE
     Route: 030
     Dates: start: 20190928, end: 20190928
  2. METOCLOPRAMIDE. [Concomitant]
     Active Substance: METOCLOPRAMIDE
     Route: 042
     Dates: start: 20190930, end: 20190930
  3. ACETAMINOPHEN. [Concomitant]
     Active Substance: ACETAMINOPHEN
     Route: 048
     Dates: start: 20190928, end: 20191001
  4. OBINUTUZUMAB. [Suspect]
     Active Substance: OBINUTUZUMAB
     Indication: LUPUS NEPHRITIS
     Dosage: ON 06/JUN/2018, AT 11.22, THE PATIENT RECEIVED RECENT DOSE OF OBINUTUZUMAB.?VOLUME OF LAST OBINUTUZU
     Route: 042
     Dates: start: 20171204
  5. HYDROMORPHONE [Concomitant]
     Active Substance: HYDROMORPHONE
     Route: 042
     Dates: start: 20190928, end: 20190928
  6. MYCOPHENOLATE MOFETIL. [Suspect]
     Active Substance: MYCOPHENOLATE MOFETIL
     Indication: LUPUS NEPHRITIS
     Dosage: ON 27/SEP/2019, SHE RECEIVED MOST RECENT DOSE OF MYCOPHENOLATE MOFETIL (1000 MG) PRIOR TO THE SAE O
     Route: 048
     Dates: start: 20171108
  7. PREGABALIN. [Concomitant]
     Active Substance: PREGABALIN
     Route: 048
     Dates: start: 20190929
  8. PREDNISOLONE. [Concomitant]
     Active Substance: PREDNISOLONE
     Indication: LUPUS NEPHRITIS
     Route: 048
     Dates: start: 20180226
  9. TRAMADOL. [Concomitant]
     Active Substance: TRAMADOL
     Route: 030
     Dates: start: 20190928, end: 20190928
  10. METHYLPREDNISOLONE. [Suspect]
     Active Substance: METHYLPREDNISOLONE
     Indication: LUPUS NEPHRITIS
     Dosage: DATE OF MOST RECENT DOSE OF METHYLPREDNISOLONE PRIOR TO SAE ONSET: 06/JUN/2019?START TIME OF MOST RE
     Route: 042
     Dates: start: 20171204
  11. MYCOPHENOLATE MOFETIL. [Suspect]
     Active Substance: MYCOPHENOLATE MOFETIL
     Route: 048
     Dates: start: 20190927
  12. OMEPRAZOLE. [Concomitant]
     Active Substance: OMEPRAZOLE
     Route: 048
     Dates: start: 200704
  13. BLEOMYCIN [Concomitant]
     Active Substance: BLEOMYCIN SULFATE
     Dosage: DOSE :2.14 U.
     Route: 061
     Dates: start: 20180724, end: 201902
  14. HYDROMORPHONE [Concomitant]
     Active Substance: HYDROMORPHONE
     Route: 042
     Dates: start: 20190929, end: 20190929

REACTIONS (1)
  - Herpes zoster [Recovered/Resolved]

NARRATIVE: CASE EVENT DATE: 20190928
